FAERS Safety Report 4996402-5 (Version None)
Quarter: 2006Q2

REPORT INFORMATION
  Report Type: 
  Country: None (occurrence: None)
  Receive Date: 20060505
  Receipt Date: 20060426
  Transmission Date: 20061013
  Serious: Yes (Life-Threatening)
  Sender: FDA-Public Use
  Company Number: 06H-122-0307841-00

PATIENT
  Age: 29 Year
  Sex: Female

DRUGS (1)
  1. SUCCINYLCHOLINE CHLORIDE [Suspect]
     Indication: INDUCTION OF ANAESTHESIA

REACTIONS (6)
  - BRONCHOSPASM [None]
  - CARDIO-RESPIRATORY DISTRESS [None]
  - FLUSHING [None]
  - HYPOTENSION [None]
  - HYPOXIA [None]
  - TYPE I HYPERSENSITIVITY [None]
